FAERS Safety Report 5025490-5 (Version None)
Quarter: 2006Q2

REPORT INFORMATION
  Report Type: 
  Country: None (occurrence: None)
  Receive Date: 20060608
  Receipt Date: 20060530
  Transmission Date: 20061013
  Serious: Yes (Hospitalization)
  Sender: FDA-Public Use
  Company Number: 2006BI004838

PATIENT
  Age: 51 Year
  Sex: Female

DRUGS (1)
  1. AVONEX [Suspect]
     Indication: MULTIPLE SCLEROSIS
     Dosage: 30 UG; QW; IM
     Route: 030
     Dates: start: 20041017

REACTIONS (9)
  - APHASIA [None]
  - BLINDNESS [None]
  - COLLAPSE OF LUNG [None]
  - DECUBITUS ULCER [None]
  - DYSPNOEA [None]
  - INFECTED SKIN ULCER [None]
  - OPEN WOUND [None]
  - SEPSIS [None]
  - TOOTH EXTRACTION [None]
